FAERS Safety Report 4795180-2 (Version None)
Quarter: 2005Q4

REPORT INFORMATION
  Report Type: 
  Country: None (occurrence: None)
  Receive Date: 20051006
  Receipt Date: 20050919
  Transmission Date: 20060501
  Serious: Yes (Death)
  Sender: FDA-Public Use
  Company Number: AVE_0043_2005

PATIENT
  Age: 19 Year

DRUGS (1)
  1. NICOTINE PATCH (LONG-ACTING) [Suspect]
     Dosage: DF TD

REACTIONS (2)
  - CARDIAC ARREST [None]
  - RESPIRATORY ARREST [None]
